FAERS Safety Report 7334433-0 (Version None)
Quarter: 2011Q1

REPORT INFORMATION
  Report Type: 
  Country: None (occurrence: None)
  Receive Date: 20110307
  Receipt Date: 20110301
  Transmission Date: 20110831
  Serious: Yes (Life-Threatening, Disabling, Other)
  Sender: FDA-Public Use
  Company Number: PHHY2011CA14920

PATIENT
  Sex: Female

DRUGS (2)
  1. FEMARA [Concomitant]
     Dosage: 2.5 MG, UNK
     Dates: start: 20101201
  2. ACLASTA [Suspect]
     Indication: OSTEOPOROSIS
     Dosage: UNK
     Dates: start: 20100414

REACTIONS (1)
  - BREAST CANCER [None]
